FAERS Safety Report 5197347-0 (Version None)
Quarter: 2006Q4

REPORT INFORMATION
  Report Type: 
  Country: None (occurrence: None)
  Receive Date: 20060929
  Receipt Date: 20060814
  Transmission Date: 20070319
  Serious: Yes (Other)
  Sender: FDA-Public Use
  Company Number: 13474747

PATIENT
  Sex: Female
  Weight: 38.55 kg

DRUGS (5)
  1. EMSAM [Suspect]
     Indication: DEPRESSION
     Dosage: 6 MILLIGRAM,1/1 DAY
     Dates: start: 20060101
  2. FOSAMAX [Concomitant]
  3. POTASSIUM ACETATE [Concomitant]
  4. SYNTHROID [Concomitant]
  5. VITAMINS [Concomitant]

REACTIONS (2)
  - LIVER FUNCTION TEST ABNORMAL [None]
  - TOOTHACHE [None]
